FAERS Safety Report 21766798 (Version 2)
Quarter: 2023Q1

REPORT INFORMATION
  Report Type: Report from Study
  Country: CO (occurrence: CO)
  Receive Date: 20221222
  Receipt Date: 20230110
  Transmission Date: 20230418
  Serious: Yes (Hospitalization)
  Sender: FDA-Public Use
  Company Number: CO-BAYER-2022A173866

PATIENT
  Age: 42 Year
  Sex: Female

DRUGS (5)
  1. ADEMPAS [Suspect]
     Active Substance: RIOCIGUAT
     Indication: Pulmonary arterial hypertension
     Dosage: 1 DF, Q8HR
     Dates: start: 20220314
  2. MACITENTAN [Concomitant]
     Active Substance: MACITENTAN
  3. SELEXIPAG [Concomitant]
     Active Substance: SELEXIPAG
  4. FUROSEMIDE [Concomitant]
     Active Substance: FUROSEMIDE
  5. SPIRONOLACTONE [Concomitant]
     Active Substance: SPIRONOLACTONE

REACTIONS (9)
  - Oedema peripheral [Not Recovered/Not Resolved]
  - Gastritis [Not Recovered/Not Resolved]
  - Hepatic steatosis [Not Recovered/Not Resolved]
  - Intra-abdominal fluid collection [Not Recovered/Not Resolved]
  - Abdominal distension [None]
  - Haemoptysis [None]
  - Peripheral swelling [None]
  - Decreased appetite [None]
  - Abdominal pain [None]

NARRATIVE: CASE EVENT DATE: 20221201
